FAERS Safety Report 22621178 (Version 1)
Quarter: 2023Q2

REPORT INFORMATION
  Report Type: Spontaneous
  Country: US (occurrence: US)
  Receive Date: 20230620
  Receipt Date: 20230620
  Transmission Date: 20230721
  Serious: Yes (Other)
  Sender: FDA-Public Use
  Company Number: US-VIIV HEALTHCARE LIMITED-US2023AMR081825

PATIENT
  Age: 69 Year
  Sex: Female

DRUGS (6)
  1. RILPIVIRINE [Suspect]
     Active Substance: RILPIVIRINE
     Indication: HIV infection
     Dosage: UNK UNK, Q2M 600/900
     Route: 030
     Dates: start: 20220211, end: 2022
  2. RILPIVIRINE [Suspect]
     Active Substance: RILPIVIRINE
     Indication: Acquired immunodeficiency syndrome
     Dosage: UNK UNK, MO 400/600
     Route: 030
     Dates: start: 2022, end: 2022
  3. RILPIVIRINE [Suspect]
     Active Substance: RILPIVIRINE
     Dosage: UNK UNK, Q2M 600/900
     Route: 030
     Dates: start: 202209, end: 20230609
  4. CABOTEGRAVIR [Suspect]
     Active Substance: CABOTEGRAVIR
     Indication: HIV infection
     Dosage: UNK UNK, Q2M 600/900
     Route: 030
     Dates: start: 20220211, end: 2022
  5. CABOTEGRAVIR [Suspect]
     Active Substance: CABOTEGRAVIR
     Indication: Acquired immunodeficiency syndrome
     Dosage: UNK UNK, MO 400/600
     Route: 030
     Dates: start: 2022, end: 2022
  6. CABOTEGRAVIR [Suspect]
     Active Substance: CABOTEGRAVIR
     Dosage: UNK UNK, Q2M 600/900
     Route: 030
     Dates: start: 202209, end: 20230609

REACTIONS (2)
  - Pathogen resistance [Unknown]
  - Viral load increased [Unknown]

NARRATIVE: CASE EVENT DATE: 20230609
